FAERS Safety Report 11648841 (Version 7)
Quarter: 2017Q2

REPORT INFORMATION
  Report Type: Spontaneous
  Country: US (occurrence: US)
  Receive Date: 20151021
  Receipt Date: 20170428
  Transmission Date: 20170829
  Serious: Yes (Hospitalization)
  Sender: FDA-Public Use
  Company Number: US-PFIZER INC-2015353199

PATIENT
  Age: 83 Year
  Sex: Female
  Weight: 59.87 kg

DRUGS (35)
  1. TYLENOL WITH CODEINE [Concomitant]
     Active Substance: ACETAMINOPHEN\CODEINE PHOSPHATE
     Indication: PAIN
     Dosage: UNK, AS NEEDED
  2. ZITHROMAX [Concomitant]
     Active Substance: AZITHROMYCIN DIHYDRATE
     Dosage: 250 MG, AS NEEDED
  3. COENZYME Q10 [Concomitant]
     Active Substance: UBIDECARENONE
     Indication: CARDIAC DISORDER
     Dosage: 100 MG, 1X/DAY(TAKING UP TO A YEAR)
  4. SYSTANE (HYPROMELLOSE 2910 (4000 MPA.S)) [Concomitant]
     Active Substance: HYPROMELLOSE 2910 (4000 MPA.S)
     Dosage: UNK
  5. CRESTOR [Concomitant]
     Active Substance: ROSUVASTATIN CALCIUM
     Dosage: 10 MG, 1X/DAY
  6. ASTELIN [Concomitant]
     Active Substance: AZELASTINE HYDROCHLORIDE
     Indication: DYSPNOEA
     Dosage: 30 ML, DAILY
     Dates: start: 2005
  7. TYLENOL WITH CODEINE [Concomitant]
     Active Substance: ACETAMINOPHEN\CODEINE PHOSPHATE
     Dosage: 4X/DAY[CODEINE PHOSPHATE: 30 MG]/[ PARACETAMOL: 300 MG] (A LITTLE MORE, EVERY 6 HOURS)
  8. VENTOLIN HFA [Concomitant]
     Active Substance: ALBUTEROL SULFATE
     Indication: NASAL CONGESTION
     Dosage: 1 DF, AS NEEDED (1 PUFF TWICE A DAY)
  9. VITAMIN D3 [Concomitant]
     Active Substance: CHOLECALCIFEROL
     Indication: CARDIAC DISORDER
     Dosage: 1000 IU, 1X/DAY
  10. VITAMIN D3 [Concomitant]
     Active Substance: CHOLECALCIFEROL
     Indication: ROUTINE HEALTH MAINTENANCE
  11. DYAZIDE [Concomitant]
     Active Substance: HYDROCHLOROTHIAZIDE\TRIAMTERENE
     Indication: BLOOD PRESSURE ABNORMAL
  12. MUCINEX [Concomitant]
     Active Substance: GUAIFENESIN
     Indication: PULMONARY CONGESTION
     Dosage: UNK UNK, AS NEEDED (TABLET TWICE A DAY)
  13. ZOLEDRONIC ACID [Concomitant]
     Active Substance: ZOLEDRONIC ACID
     Indication: PAIN
     Dosage: UNK
     Dates: start: 20151014
  14. CRESTOR [Concomitant]
     Active Substance: ROSUVASTATIN CALCIUM
     Indication: BLOOD PRESSURE ABNORMAL
     Dosage: 10 MG, 1X/DAY
     Route: 048
     Dates: start: 20111222
  15. VALIUM [Concomitant]
     Active Substance: DIAZEPAM
     Dosage: 2 MG, AS NEEDED(4 TIMES A DAY)
  16. ASPIRIN. [Concomitant]
     Active Substance: ASPIRIN
     Dosage: 81 MG, 1X/DAY
     Route: 048
  17. TRIAMTERENE-HCTZ [Concomitant]
     Active Substance: HYDROCHLOROTHIAZIDE\TRIAMTERENE
     Dosage: UNK, 1X/DAY (TRIAMTERENE: 37.5; HCTZ: 25MG)
     Route: 048
     Dates: start: 20111222
  18. CENTRUM SILVER +50 [Concomitant]
     Indication: ROUTINE HEALTH MAINTENANCE
     Dosage: UNK, 1X/DAY
  19. ASCORBIC ACID W/FOLIC ACID/VITAMIN B COMPLEX [Concomitant]
     Indication: SUPPLEMENTATION THERAPY
     Dosage: 1X/DAY
  20. KLOR-CON [Concomitant]
     Active Substance: POTASSIUM CHLORIDE
     Indication: BLOOD POTASSIUM ABNORMAL
     Dosage: 10 MEQ, 1X/DAY (M10)
     Route: 048
     Dates: start: 2007
  21. CEREFOLIN NAC [Concomitant]
     Dosage: UNK, 1X/DAY (600-2-6MG)
     Route: 048
     Dates: start: 20111222
  22. AROMASIN [Suspect]
     Active Substance: EXEMESTANE
     Indication: BREAST CANCER
     Dosage: 25 MG, 1X/DAY
     Route: 048
  23. TRIAMTERENE. [Concomitant]
     Active Substance: TRIAMTERENE
     Indication: DIURETIC THERAPY
     Dosage: 37.25 MG, 1X/DAY
     Dates: start: 2005
  24. VALIUM [Concomitant]
     Active Substance: DIAZEPAM
     Indication: PAIN
     Dosage: 2 MG, AS NEEDED
     Dates: start: 2007
  25. VALIUM [Concomitant]
     Active Substance: DIAZEPAM
     Indication: MYALGIA
     Dosage: 1 MG, 2X/DAY (1/2 TABLET (PRN))
     Dates: start: 20111222
  26. AZELASTINE [Concomitant]
     Active Substance: AZELASTINE
     Dosage: 137 UG, 2X/DAY (1 SPRAY IN EACH NOSTRIL; 0.1 %)
     Route: 045
  27. TYLENOL WITH CODEINE [Concomitant]
     Active Substance: ACETAMINOPHEN\CODEINE PHOSPHATE
     Dosage: AS NEEDED[CODEINE PHOSPHATE: 30 MG]/[ PARACETAMOL: 300 MG](10-12 HOURS PRN, TAKING 2 PER DAY)
  28. THERATEARS [Concomitant]
     Active Substance: CARBOXYMETHYLCELLULOSE SODIUM
     Indication: DRY EYE
     Dosage: UNK UNK, AS NEEDED(EYE DROPS AS NEEDED)
  29. AROMASIN [Suspect]
     Active Substance: EXEMESTANE
     Indication: NEOPLASM MALIGNANT
     Dosage: 25 MG, 1X/DAY
     Route: 048
     Dates: start: 2011
  30. CRESTOR [Concomitant]
     Active Substance: ROSUVASTATIN CALCIUM
     Indication: BLOOD CHOLESTEROL ABNORMAL
     Dosage: 10 MG, 1X/DAY
     Route: 048
     Dates: start: 2007
  31. VENTOLIN [Concomitant]
     Active Substance: ALBUTEROL SULFATE
     Indication: PULMONARY CONGESTION
     Dosage: UNK, AS NEEDED(HFA, 1 PUFF TWICE A DAY AS NEEDED)
     Dates: start: 2007
  32. POTASSIUM CHLORIDE. [Concomitant]
     Active Substance: POTASSIUM CHLORIDE
     Dosage: 10 MEQ, 1X/DAY
     Route: 048
     Dates: start: 20111222
  33. POTASSIUM CHLORIDE. [Concomitant]
     Active Substance: POTASSIUM CHLORIDE
     Dosage: 10 MG, 1X/DAY
  34. TRAMADOL. [Concomitant]
     Active Substance: TRAMADOL
     Dosage: 50 MG, 1X/DAY
     Route: 048
  35. DYAZIDE [Concomitant]
     Active Substance: HYDROCHLOROTHIAZIDE\TRIAMTERENE
     Indication: CARDIAC DISORDER
     Dosage: 25 MG, 1X/DAY
     Route: 048

REACTIONS (11)
  - Epistaxis [Recovered/Resolved]
  - Bone pain [Not Recovered/Not Resolved]
  - Malaise [Unknown]
  - Cystitis [Unknown]
  - Groin infection [Recovering/Resolving]
  - Myalgia [Not Recovered/Not Resolved]
  - Somnolence [Unknown]
  - Pyrexia [Recovered/Resolved]
  - Nausea [Not Recovered/Not Resolved]
  - Decreased appetite [Not Recovered/Not Resolved]
  - Arthralgia [Not Recovered/Not Resolved]

NARRATIVE: CASE EVENT DATE: 20151101
